FAERS Safety Report 20921980 (Version 1)
Quarter: 2022Q2

REPORT INFORMATION
  Report Type: Report from Study
  Country: US (occurrence: US)
  Receive Date: 20220607
  Receipt Date: 20220607
  Transmission Date: 20220720
  Serious: Yes (Hospitalization)
  Sender: FDA-Public Use
  Company Number: US-AMGEN-USASL2022094560

PATIENT
  Age: 71 Year
  Sex: Female

DRUGS (1)
  1. LUMAKRAS [Suspect]
     Active Substance: SOTORASIB
     Indication: Product used for unknown indication
     Dosage: 120 MILLIGRAM, 6 TABLETS ONCE DAILY
     Route: 048
     Dates: start: 202203

REACTIONS (2)
  - Oesophageal mucosal blister [Not Recovered/Not Resolved]
  - Weight decreased [Not Recovered/Not Resolved]
